FAERS Safety Report 14526236 (Version 3)
Quarter: 2018Q2

REPORT INFORMATION
  Report Type: Report from Study
  Country: CA (occurrence: CA)
  Receive Date: 20180213
  Receipt Date: 20180416
  Transmission Date: 20180711
  Serious: Yes (Other)
  Sender: FDA-Public Use
  Company Number: CA-SA-2017SA217162

PATIENT
  Age: 28 Year
  Sex: Male

DRUGS (14)
  1. RANITIDINE. [Concomitant]
     Active Substance: RANITIDINE
     Indication: PREMEDICATION
     Route: 048
     Dates: start: 20171030, end: 20171103
  2. TYLENOL [Concomitant]
     Active Substance: ACETAMINOPHEN
     Indication: PREMEDICATION
     Dosage: DOSE: 650-975 MG
     Route: 048
     Dates: start: 20171030
  3. TRINTELLIX [Concomitant]
     Active Substance: VORTIOXETINE HYDROBROMIDE
     Route: 048
  4. ATIVAN [Concomitant]
     Active Substance: LORAZEPAM
     Indication: SLEEP DISORDER
     Route: 048
     Dates: start: 20171031
  5. METHYLPREDNISOLONE. [Suspect]
     Active Substance: METHYLPREDNISOLONE
     Indication: PREMEDICATION
     Route: 042
     Dates: start: 20171030, end: 20171103
  6. ABILIFY [Concomitant]
     Active Substance: ARIPIPRAZOLE
     Route: 048
  7. LEMTRADA [Suspect]
     Active Substance: ALEMTUZUMAB
     Indication: RELAPSING-REMITTING MULTIPLE SCLEROSIS
     Route: 041
     Dates: start: 20171030, end: 20171103
  8. LYRICA [Concomitant]
     Active Substance: PREGABALIN
     Route: 048
  9. ACYCLOVIR. [Concomitant]
     Active Substance: ACYCLOVIR
     Indication: PREMEDICATION
     Route: 048
     Dates: start: 20171030
  10. LYRICA [Concomitant]
     Active Substance: PREGABALIN
     Route: 048
  11. CANNABIS [Concomitant]
     Active Substance: CANNABIS SATIVA SUBSP. INDICA TOP
     Route: 048
  12. BENADRYL [Concomitant]
     Active Substance: DIPHENHYDRAMINE HYDROCHLORIDE
     Indication: PREMEDICATION
     Dosage: DOSE: 25-50 MG
     Route: 048
     Dates: start: 20171030
  13. METHYLPREDNISOLONE. [Concomitant]
     Active Substance: METHYLPREDNISOLONE
     Indication: PREMEDICATION
     Route: 042
     Dates: start: 20171030, end: 20171103
  14. GRAVOL [Concomitant]
     Active Substance: DIMENHYDRINATE
     Indication: PREMEDICATION
     Route: 048
     Dates: start: 20171030, end: 20171103

REACTIONS (24)
  - Platelet count decreased [Unknown]
  - Anxiety [Not Recovered/Not Resolved]
  - Headache [Recovered/Resolved]
  - Myalgia [Recovered/Resolved]
  - Glucose urine present [Unknown]
  - Pain in extremity [Recovered/Resolved]
  - Neutropenia [Unknown]
  - Eosinophil count increased [Unknown]
  - Hypertension [Recovered/Resolved]
  - Somnolence [Recovered/Resolved]
  - Insomnia [Recovered/Resolved]
  - Neutrophil count decreased [Unknown]
  - Lymphocyte count decreased [Not Recovered/Not Resolved]
  - Pruritus [Recovered/Resolved]
  - Seasonal allergy [Recovering/Resolving]
  - Dysgeusia [Recovered/Resolved]
  - Tachycardia [Recovered/Resolved]
  - Pruritus generalised [Recovered/Resolved]
  - Specific gravity urine increased [Recovered/Resolved]
  - Platelet count decreased [Not Recovered/Not Resolved]
  - Dry skin [Recovered/Resolved]
  - White blood cell count decreased [Recovered/Resolved]
  - Erythema [Recovered/Resolved]
  - Rhinorrhoea [Recovering/Resolving]

NARRATIVE: CASE EVENT DATE: 2017
